FAERS Safety Report 4944392-3 (Version None)
Quarter: 2006Q1

REPORT INFORMATION
  Report Type: 
  Country: None (occurrence: None)
  Receive Date: 20060315
  Receipt Date: 20051003
  Transmission Date: 20060701
  Serious: Yes (Hospitalization, Other)
  Sender: FDA-Public Use
  Company Number: US-MERCK-0510USA02715

PATIENT
  Age: 72 Year
  Sex: Male
  Weight: 75 kg

DRUGS (1)
  1. VIOXX [Suspect]
     Indication: RHEUMATOID ARTHRITIS
     Route: 048
     Dates: start: 19990501, end: 20010501

REACTIONS (2)
  - CEREBROVASCULAR ACCIDENT [None]
  - ISCHAEMIC STROKE [None]
